FAERS Safety Report 8476220-6 (Version None)
Quarter: 2012Q2

REPORT INFORMATION
  Report Type: 
  Country: None (occurrence: None)
  Receive Date: 20120628
  Receipt Date: 20120616
  Transmission Date: 20120825
  Serious: Yes (Hospitalization, Other)
  Sender: FDA-Public Use
  Company Number: US-ACTELION-A-US2012-67507

PATIENT

DRUGS (4)
  1. REMODULIN [Concomitant]
  2. TRACLEER [Suspect]
     Indication: PULMONARY ARTERIAL HYPERTENSION
     Dosage: UNK
     Route: 048
     Dates: start: 20070822
  3. COUMADIN [Concomitant]
  4. SILDENAFIL [Concomitant]

REACTIONS (3)
  - MUSCULOSKELETAL CHEST PAIN [None]
  - PULMONARY HYPERTENSION [None]
  - DISEASE COMPLICATION [None]
